FAERS Safety Report 5288709-1 (Version None)
Quarter: 2007Q2

REPORT INFORMATION
  Report Type: 
  Country: None (occurrence: None)
  Receive Date: 20070405
  Receipt Date: 20070321
  Transmission Date: 20071010
  Serious: Yes (Other)
  Sender: FDA-Public Use
  Company Number: US-AMGEN-US216162

PATIENT
  Sex: Female

DRUGS (1)
  1. ENBREL [Suspect]

REACTIONS (3)
  - ABORTION SPONTANEOUS [None]
  - FOETAL DISORDER [None]
  - TRANSMISSION OF DRUG VIA SEMEN [None]
